FAERS Safety Report 4772816-3 (Version None)
Quarter: 2005Q3

REPORT INFORMATION
  Report Type: 
  Country: None (occurrence: None)
  Receive Date: 20050919
  Receipt Date: 20050811
  Transmission Date: 20060218
  Serious: Yes (Hospitalization, Other)
  Sender: FDA-Public Use
  Company Number: US-MERCK-0508USA02073

PATIENT
  Age: 76 Year
  Sex: Female
  Weight: 47 kg

DRUGS (5)
  1. FOSAMAX [Suspect]
     Indication: OSTEOPOROSIS
     Route: 048
     Dates: start: 20020601, end: 20050801
  2. VERAPAMIL MSD LP [Concomitant]
     Route: 048
  3. TOPROL-XL [Concomitant]
     Route: 065
  4. ZYRTEC [Concomitant]
     Route: 065
  5. ASPIRIN [Suspect]
     Route: 065

REACTIONS (5)
  - DIVERTICULUM INTESTINAL [None]
  - GASTRIC ULCER [None]
  - GASTRITIS [None]
  - HAEMORRHOIDS [None]
  - UPPER GASTROINTESTINAL HAEMORRHAGE [None]
